FAERS Safety Report 26042428 (Version 2)
Quarter: 2025Q4

REPORT INFORMATION
  Report Type: Report from Study
  Country: GB (occurrence: GB)
  Receive Date: 20251113
  Receipt Date: 20251205
  Transmission Date: 20260118
  Serious: Yes (Other)
  Sender: ABBVIE
  Company Number: GB-ABBVIE-6540564

PATIENT
  Age: 19 Year
  Sex: Female

DRUGS (2)
  1. HUMIRA [Suspect]
     Active Substance: ADALIMUMAB
     Indication: Spinal osteoarthritis
     Dosage: DOSE FORM: SOLUTION FOR INJECTION PRE-FILLED PENS, 2 PRE-FILLED DISPOSABLE INJECTION
     Route: 058
     Dates: end: 2025
  2. HUMIRA [Suspect]
     Active Substance: ADALIMUMAB
     Dosage: DOSE FORM: SOLUTION FOR INJECTION PRE-FILLED PENS, 2 PRE-FILLED DISPOSABLE INJECTION
     Route: 058
     Dates: start: 2025, end: 202509

REACTIONS (2)
  - Unevaluable event [Unknown]
  - Tonsillectomy [Unknown]

NARRATIVE: CASE EVENT DATE: 20250501
